FAERS Safety Report 5364587-7 (Version None)
Quarter: 2007Q2

REPORT INFORMATION
  Report Type: 
  Country: None (occurrence: None)
  Receive Date: 20070530
  Receipt Date: 20070120
  Transmission Date: 20071010
  Serious: No
  Sender: FDA-Public Use
  Company Number: 2007PV028705

PATIENT
  Age: 62 Year
  Sex: Male
  Weight: 83.9154 kg

DRUGS (6)
  1. BYETTA [Suspect]
     Indication: DIABETES MELLITUS NON-INSULIN-DEPENDENT
     Dosage: 5 MCG;BID;SC   10 MCG;BID;SC   5 MCG;BID;SC
     Route: 058
     Dates: start: 20060101, end: 20060101
  2. BYETTA [Suspect]
     Indication: DIABETES MELLITUS NON-INSULIN-DEPENDENT
     Dosage: 5 MCG;BID;SC   10 MCG;BID;SC   5 MCG;BID;SC
     Route: 058
     Dates: start: 20060201, end: 20060201
  3. BYETTA [Suspect]
     Indication: DIABETES MELLITUS NON-INSULIN-DEPENDENT
     Dosage: 5 MCG;BID;SC   10 MCG;BID;SC   5 MCG;BID;SC
     Route: 058
     Dates: start: 20060201
  4. METFORMIN HCL [Concomitant]
  5. ACTOS [Concomitant]
  6. NEXIUM [Concomitant]

REACTIONS (5)
  - ASTHENIA [None]
  - BLOOD GLUCOSE DECREASED [None]
  - INCREASED APPETITE [None]
  - NERVOUSNESS [None]
  - WEIGHT DECREASED [None]
